FAERS Safety Report 8064145-X (Version None)
Quarter: 2011Q4

REPORT INFORMATION
  Report Type: 
  Country: None (occurrence: None)
  Receive Date: 20111221
  Receipt Date: 20110601
  Transmission Date: 20120403
  Serious: Yes (Other)
  Sender: FDA-Public Use
  Company Number: 2011S1000038

PATIENT
  Age: 47 Year
  Sex: Female
  Weight: 83.0083 kg

DRUGS (13)
  1. BENADRYL [Concomitant]
  2. SYNTHROID [Concomitant]
  3. KRYSTEXXA [Suspect]
     Indication: GOUT
     Dosage: 8 MG;X1; IV
     Route: 042
     Dates: start: 20110519, end: 20110519
  4. KRYSTEXXA [Suspect]
     Indication: GOUT
     Dosage: 8 MG;X1; IV
     Route: 042
     Dates: start: 20110531, end: 20110531
  5. SOLU-MEDROL [Concomitant]
  6. LABETALOL HCL [Concomitant]
  7. HYDRALAZINE HCL [Concomitant]
  8. COLCHICINE [Concomitant]
  9. LASIX [Concomitant]
  10. ZANTAC [Concomitant]
  11. AVALIDE [Concomitant]
  12. MEDROL [Concomitant]
  13. PERCOCET [Concomitant]

REACTIONS (2)
  - RASH [None]
  - INFUSION RELATED REACTION [None]
